FAERS Safety Report 10716107 (Version 2)
Quarter: 2015Q1

REPORT INFORMATION
  Report Type: Spontaneous
  Country: IT (occurrence: IT)
  Receive Date: 20150116
  Receipt Date: 20150119
  Transmission Date: 20150721
  Serious: Yes (Hospitalization)
  Sender: FDA-Public Use
  Company Number: IT-ROCHE-1522070

PATIENT
  Age: 80 Year
  Sex: Male

DRUGS (11)
  1. ENAPREN [Concomitant]
     Active Substance: ENALAPRIL MALEATE
     Dosage: 5 MG TABLETS 28 TABLETS
     Route: 048
  2. SERETIDE [Concomitant]
     Active Substance: FLUTICASONE FUROATE\SALMETEROL XINAFOATE
     Dosage: 50/500, 1 INHALER 60 DOSES
     Route: 045
  3. SILODYX [Concomitant]
     Active Substance: SILODOSIN
     Dosage: 4 MG HARD CAPSULE 30 CAPSULES
     Route: 048
  4. SPIRIVA [Concomitant]
     Active Substance: TIOTROPIUM BROMIDE MONOHYDRATE
     Dosage: 30 X 18 MCG CAPSULES WITH HANDIHALER DEVICE
     Route: 045
  5. ROCEFIN [Suspect]
     Active Substance: CEFTRIAXONE SODIUM
     Indication: PRODUCT USED FOR UNKNOWN INDICATION
     Dosage: 1 G/3.5 ML POWDER AND SOLVENT FOR SOLUTION FOR INJECTION
     Route: 030
     Dates: start: 20141230, end: 20150111
  6. LASIX [Concomitant]
     Active Substance: FUROSEMIDE
     Dosage: ^500 MG TABLETS^ 20 TABLETS
     Route: 048
  7. SIVASTIN [Concomitant]
     Active Substance: SIMVASTATIN
     Dosage: 20 MG FILM-COATED TABLETS 10 TABLETS
     Route: 048
  8. ZYLORIC [Concomitant]
     Active Substance: ALLOPURINOL
     Dosage: 300 MG TABLETS 30 SCORED TABLETS
     Route: 048
  9. CARDIOASPIRIN [Concomitant]
     Active Substance: ASPIRIN
     Dosage: 100 MG GASTRO-RESISTANT TABLETS 30 TABLETS
     Route: 048
  10. AVODART [Concomitant]
     Active Substance: DUTASTERIDE
     Dosage: ^0.5 MG SOFT CAPSULES^ 30 CAPSULES
     Route: 048
  11. OXYGEN. [Concomitant]
     Active Substance: OXYGEN

REACTIONS (3)
  - Underdose [Unknown]
  - Pneumonitis [Recovering/Resolving]
  - Drug ineffective [Unknown]

NARRATIVE: CASE EVENT DATE: 20150111
